FAERS Safety Report 9105336 (Version 1)
Quarter: 2013Q1

REPORT INFORMATION
  Report Type: Not Available
  Country: SE (occurrence: SE)
  Receive Date: 20130220
  Receipt Date: 20130220
  Transmission Date: 20140127
  Serious: Yes (Hospitalization)
  Sender: FDA-Public Use
  Company Number: SE-NAPPMUNDI-GBR-2013-0013212

PATIENT
  Age: 87 Year
  Sex: Female

DRUGS (2)
  1. OXYCONTIN [Suspect]
     Indication: BACK PAIN
     Dosage: 10 MG, BID
     Route: 048
     Dates: start: 20121202, end: 20121210
  2. OXYCONTIN [Suspect]
     Indication: PAIN IN EXTREMITY

REACTIONS (2)
  - Nightmare [Unknown]
  - Confusional state [Unknown]
